FAERS Safety Report 20862113 (Version 1)
Quarter: 2022Q2

REPORT INFORMATION
  Report Type: Spontaneous
  Country: DE (occurrence: DE)
  Receive Date: 20220523
  Receipt Date: 20220523
  Transmission Date: 20220721
  Serious: Yes (Other)
  Sender: FDA-Public Use
  Company Number: DE-UCBSA-2022024935

PATIENT
  Age: 25 Year
  Sex: Male

DRUGS (8)
  1. LEVETIRACETAM [Suspect]
     Active Substance: LEVETIRACETAM
     Indication: Seizure
     Dosage: 2500 MG, 2X/DAY
  2. LEVETIRACETAM [Suspect]
     Active Substance: LEVETIRACETAM
     Dosage: 2000 MG, 2X/DAY
  3. LEVETIRACETAM [Suspect]
     Active Substance: LEVETIRACETAM
     Dosage: 9000 MG, 2X/DAY
  4. LEVETIRACETAM [Suspect]
     Active Substance: LEVETIRACETAM
     Dosage: 250 MG, 2X/DAY
  5. BRIVARACETAM [Suspect]
     Active Substance: BRIVARACETAM
     Indication: Seizure
     Dosage: 300MG
  6. BRIVARACETAM [Suspect]
     Active Substance: BRIVARACETAM
     Dosage: 400 MG, DAILY
  7. VIMPAT [Suspect]
     Active Substance: LACOSAMIDE
     Indication: Seizure
     Dosage: 200 MG, 2X/DAY
  8. VIMPAT [Suspect]
     Active Substance: LACOSAMIDE
     Dosage: 100 MG, 2X/DAY

REACTIONS (10)
  - Cortical dysplasia [Unknown]
  - Product dose omission in error [Unknown]
  - Seizure [Unknown]
  - Therapeutic product effect incomplete [Unknown]
  - Impulsive behaviour [Unknown]
  - Somnolence [Unknown]
  - Fatigue [Unknown]
  - Drug resistance [Unknown]
  - Prescribed overdose [Unknown]
  - Intentional product use issue [Unknown]
